FAERS Safety Report 5653858-2 (Version None)
Quarter: 2008Q1

REPORT INFORMATION
  Report Type: 
  Country: None (occurrence: None)
  Receive Date: 20080306
  Receipt Date: 20080225
  Transmission Date: 20080703
  Serious: Yes (Other)
  Sender: FDA-Public Use
  Company Number: US-PFIZER INC-2008017557

PATIENT
  Sex: Female
  Weight: 68 kg

DRUGS (7)
  1. LIPITOR [Suspect]
  2. LOPRESSOR [Suspect]
  3. LASIX [Suspect]
  4. BENADRYL [Suspect]
     Indication: INSOMNIA
     Dates: start: 20070818, end: 20070818
  5. VYTORIN [Suspect]
  6. POTASSIUM CHLORIDE [Concomitant]
     Dosage: DAILY DOSE:10MEQ
  7. COENZYME Q10 [Concomitant]

REACTIONS (14)
  - BODY HEIGHT DECREASED [None]
  - CARPAL TUNNEL SYNDROME [None]
  - DIZZINESS [None]
  - DYSPNOEA [None]
  - FEELING ABNORMAL [None]
  - HAEMATOCRIT DECREASED [None]
  - HAEMATOMA [None]
  - HAEMOGLOBIN DECREASED [None]
  - IMPAIRED DRIVING ABILITY [None]
  - INSOMNIA [None]
  - STOMACH DISCOMFORT [None]
  - TACHYCARDIA [None]
  - THROMBOCYTOPENIA [None]
  - TINNITUS [None]
